FAERS Safety Report 7129371-2 (Version None)
Quarter: 2010Q4

REPORT INFORMATION
  Report Type: 
  Country: None (occurrence: None)
  Receive Date: 20101130
  Receipt Date: 20101118
  Transmission Date: 20110411
  Serious: No
  Sender: FDA-Public Use
  Company Number: US-PFIZER INC-2010152627

PATIENT
  Age: 38 Year
  Sex: Female
  Weight: 68 kg

DRUGS (4)
  1. PRISTIQ [Suspect]
     Indication: DEPRESSION
     Dosage: 50 MG, DAILY
     Route: 048
     Dates: start: 20101001, end: 20101101
  2. PRISTIQ [Suspect]
     Indication: ANXIETY
  3. ADDERALL 10 [Concomitant]
     Dosage: 20 MG, 2X/DAY
  4. ABILIFY [Concomitant]
     Dosage: 50 MG, UNK

REACTIONS (1)
  - ALOPECIA [None]
